FAERS Safety Report 17058528 (Version 1)
Quarter: 2019Q4

REPORT INFORMATION
  Report Type: Report from Study
  Country: CA (occurrence: CA)
  Receive Date: 20191121
  Receipt Date: 20191121
  Transmission Date: 20200122
  Serious: Yes (Other)
  Sender: FDA-Public Use
  Company Number: CA-JNJFOC-20191118032

PATIENT
  Age: 65 Year
  Sex: Female
  Weight: 108.8 kg

DRUGS (1)
  1. STELARA [Suspect]
     Active Substance: USTEKINUMAB
     Indication: CROHN^S DISEASE
     Route: 058
     Dates: start: 20180822

REACTIONS (2)
  - Lower respiratory tract infection [Recovered/Resolved]
  - Pulmonary mass [Unknown]
